FAERS Safety Report 23188232 (Version 7)
Quarter: 2025Q2

REPORT INFORMATION
  Report Type: Spontaneous
  Country: US (occurrence: US)
  Receive Date: 20231115
  Receipt Date: 20250429
  Transmission Date: 20250717
  Serious: No
  Sender: PFIZER
  Company Number: US-PFIZER INC-PV202300185123

PATIENT
  Age: 74 Year
  Sex: Male

DRUGS (11)
  1. XELJANZ XR [Suspect]
     Active Substance: TOFACITINIB CITRATE
  2. TRELEGY ELLIPTA [Concomitant]
     Active Substance: FLUTICASONE FUROATE\UMECLIDINIUM BROMIDE\VILANTEROL TRIFENATATE
  3. NORCO [Concomitant]
     Active Substance: ACETAMINOPHEN\HYDROCODONE BITARTRATE
  4. ACYCLOVIR [Concomitant]
     Active Substance: ACYCLOVIR
  5. ALBUTEROL [Concomitant]
     Active Substance: ALBUTEROL
  6. BENZONATATE [Concomitant]
     Active Substance: BENZONATATE
  7. BUPROPION [Concomitant]
     Active Substance: BUPROPION
  8. FEBUXOSTAT [Concomitant]
     Active Substance: FEBUXOSTAT
  9. FLUTICASONE [Concomitant]
     Active Substance: FLUTICASONE
  10. FOLIC ACID [Concomitant]
     Active Substance: FOLIC ACID
  11. GABAPENTIN [Concomitant]
     Active Substance: GABAPENTIN

REACTIONS (5)
  - Illness [Unknown]
  - Sleep disorder [Unknown]
  - Influenza [Recovered/Resolved]
  - Intentional product misuse [Unknown]
  - Wrong technique in product usage process [Unknown]

NARRATIVE: CASE EVENT DATE: 20230101
